FAERS Safety Report 11149314 (Version 7)
Quarter: 2015Q4

REPORT INFORMATION
  Report Type: Spontaneous
  Country: US (occurrence: US)
  Receive Date: 20150529
  Receipt Date: 20151015
  Transmission Date: 20160304
  Serious: Yes (Death, Hospitalization, Other)
  Sender: FDA-Public Use
  Company Number: US-ASTRAZENECA-2014SE49355

PATIENT
  Age: 22399 Day
  Sex: Female
  Weight: 93.5 kg

DRUGS (22)
  1. BYETTA [Suspect]
     Active Substance: EXENATIDE
     Dosage: 5 MCG/0.02 ML PEN; UNKNOWN
     Route: 065
     Dates: start: 20061130, end: 200910
  2. DOCUSATE CALCIUM. [Concomitant]
     Active Substance: DOCUSATE CALCIUM
     Dates: start: 20110630
  3. VICODIN [Concomitant]
     Active Substance: ACETAMINOPHEN\HYDROCODONE BITARTRATE
     Indication: PAIN
     Dosage: 1DF=5-500MG TABS AS NECESSARY; INTERMITTENT
     Route: 048
  4. HUMALOG [Concomitant]
     Active Substance: INSULIN LISPRO
     Indication: DIABETES MELLITUS
     Route: 058
  5. CETRIZINE/ ZYRTEC [Concomitant]
     Dates: start: 20110630
  6. INSULIN [Concomitant]
     Active Substance: INSULIN NOS
     Indication: DIABETES MELLITUS
  7. K-DUR [Concomitant]
     Active Substance: POTASSIUM CHLORIDE
     Route: 048
  8. TRIAMTERENE+ HYDROCHLOROTHIAZIDE [Concomitant]
     Dosage: 1DF=37.5-25 MG CAPS; TWO TIMES A DAY
     Route: 048
  9. IBUPROFEN. [Concomitant]
     Active Substance: IBUPROFEN
     Dates: start: 20110630
  10. ZOFRAN [Concomitant]
     Active Substance: ONDANSETRON HYDROCHLORIDE
     Indication: NAUSEA
     Route: 048
     Dates: start: 20120424
  11. MAGNESIUM CITRATE. [Concomitant]
     Active Substance: MAGNESIUM CITRATE
     Indication: ADJUVANT THERAPY
     Dates: start: 20110630
  12. METOPROLOL TARTRATE. [Concomitant]
     Active Substance: METOPROLOL TARTRATE
     Route: 048
  13. LASIX [Concomitant]
     Active Substance: FUROSEMIDE
     Route: 048
     Dates: start: 20120424
  14. ALDACTONE [Concomitant]
     Active Substance: SPIRONOLACTONE
     Route: 048
     Dates: start: 20120424
  15. GABAPENTIN. [Concomitant]
     Active Substance: GABAPENTIN
     Indication: DIABETES MELLITUS
     Route: 048
  16. LANTUS [Concomitant]
     Active Substance: INSULIN GLARGINE
     Route: 058
  17. ALLOPURINOL. [Concomitant]
     Active Substance: ALLOPURINOL
     Indication: GOUT
  18. CALCIUM CARBONATE. [Concomitant]
     Active Substance: CALCIUM CARBONATE
     Route: 048
     Dates: start: 20120424
  19. COLCHICINE. [Concomitant]
     Active Substance: COLCHICINE
     Indication: GOUT
  20. MULTIVITAMIN [Concomitant]
     Active Substance: VITAMINS
     Indication: NUTRITIONAL SUPPLEMENTATION
  21. UNITHROID [Concomitant]
     Active Substance: LEVOTHYROXINE SODIUM
     Indication: THYROID DISORDER
  22. TRAMADOL. [Concomitant]
     Active Substance: TRAMADOL
     Indication: DIABETES MELLITUS
     Route: 048
     Dates: start: 20110630

REACTIONS (6)
  - Jaundice cholestatic [Unknown]
  - Metastases to lymph nodes [Unknown]
  - Cardio-respiratory arrest [Fatal]
  - Bile duct obstruction [Unknown]
  - Ascites [Unknown]
  - Pancreatic carcinoma metastatic [Fatal]

NARRATIVE: CASE EVENT DATE: 20120329
